FAERS Safety Report 4290580-1 (Version None)
Quarter: 2004Q1

REPORT INFORMATION
  Report Type: 
  Country: None (occurrence: None)
  Receive Date: 20040203
  Receipt Date: 20040128
  Transmission Date: 20041129
  Serious: Yes (Other)
  Sender: FDA-Public Use
  Company Number: 200410039BYL

PATIENT
  Age: 13 Year
  Sex: Male

DRUGS (1)
  1. GAMIMUNE N 5% [Suspect]
     Indication: BONE MARROW TRANSPLANT

REACTIONS (1)
  - ADULT T-CELL LYMPHOMA/LEUKAEMIA [None]
